FAERS Safety Report 22660718 (Version 1)
Quarter: 2023Q2

REPORT INFORMATION
  Report Type: Report from Study
  Country: FR (occurrence: FR)
  Receive Date: 20230630
  Receipt Date: 20230630
  Transmission Date: 20230721
  Serious: Yes (Other)
  Sender: FDA-Public Use
  Company Number: FR-JNJFOC-20230668853

PATIENT
  Age: 40 Year
  Sex: Male

DRUGS (1)
  1. SPRAVATO [Suspect]
     Active Substance: ESKETAMINE
     Indication: Depression
     Dosage: THERAPY END DATE WAS REPORTED AS 15-JUN-2023.
     Dates: start: 20230406

REACTIONS (2)
  - Suicidal ideation [Recovered/Resolved]
  - Illusion [Recovered/Resolved]

NARRATIVE: CASE EVENT DATE: 20230528
